FAERS Safety Report 11239759 (Version 7)
Quarter: 2018Q1

REPORT INFORMATION
  Report Type: Report from Study
  Country: CA (occurrence: CA)
  Receive Date: 20150706
  Receipt Date: 20180207
  Transmission Date: 20180508
  Serious: Yes (Other)
  Sender: FDA-Public Use
  Company Number: PHHY2015CA080905

PATIENT
  Sex: Female

DRUGS (1)
  1. TASIGNA [Suspect]
     Active Substance: NILOTINIB
     Indication: CHRONIC MYELOID LEUKAEMIA
     Dosage: 300 MG, BID
     Route: 048
     Dates: start: 20150512

REACTIONS (29)
  - Rash papular [Unknown]
  - Dry skin [Unknown]
  - Impaired healing [Unknown]
  - Vaginal discharge [Unknown]
  - Acne [Unknown]
  - Vaginal infection [Unknown]
  - Uterine disorder [Unknown]
  - Chest discomfort [Unknown]
  - Dizziness [Unknown]
  - Diabetes mellitus [Unknown]
  - Vaginal lesion [Unknown]
  - Pruritus [Unknown]
  - Skin hypertrophy [Unknown]
  - Anxiety [Unknown]
  - Headache [Recovering/Resolving]
  - Hyperchlorhydria [Unknown]
  - Constipation [Not Recovered/Not Resolved]
  - Skin disorder [Unknown]
  - Secretion discharge [Unknown]
  - Pain [Unknown]
  - Discomfort [Unknown]
  - Erythema [Unknown]
  - Oropharyngeal pain [Unknown]
  - Alopecia [Unknown]
  - Urinary tract infection [Unknown]
  - Asthenia [Unknown]
  - Dyspepsia [Unknown]
  - Vulvovaginal discomfort [Unknown]
  - Nasopharyngitis [Unknown]
